FAERS Safety Report 8924339 (Version 3)
Quarter: 2013Q2

REPORT INFORMATION
  Report Type: Spontaneous
  Country: IL (occurrence: IL)
  Receive Date: 20121126
  Receipt Date: 20130510
  Transmission Date: 20140414
  Serious: Yes (Hospitalization)
  Sender: FDA-Public Use
  Company Number: IL-GLAXOSMITHKLINE-B0846602A

PATIENT
  Age: 77 Year
  Sex: Male

DRUGS (9)
  1. VOTRIENT [Suspect]
     Indication: METASTATIC RENAL CELL CARCINOMA
     Route: 065
     Dates: start: 201212, end: 20130429
  2. ASPIRIN [Concomitant]
  3. SIMVASTATIN [Concomitant]
  4. OMEPRAZOLE [Concomitant]
  5. NEOBLOC [Concomitant]
  6. RAMIPRIL [Concomitant]
  7. BROTIZOLAM [Concomitant]
  8. PERMIXON [Concomitant]
  9. VOTRIENT [Suspect]
     Indication: METASTATIC RENAL CELL CARCINOMA
     Route: 065
     Dates: start: 201211, end: 201211

REACTIONS (5)
  - Pancreatitis [Recovered/Resolved]
  - Lipase increased [Unknown]
  - Abdominal pain upper [Recovered/Resolved]
  - Flatulence [Unknown]
  - Nausea [Unknown]
